FAERS Safety Report 7081320-1 (Version None)
Quarter: 2010Q4

REPORT INFORMATION
  Report Type: 
  Country: None (occurrence: None)
  Receive Date: 20101103
  Receipt Date: 20101020
  Transmission Date: 20110411
  Serious: Yes (Disabling, Other)
  Sender: FDA-Public Use
  Company Number: PHEH2007US02901

PATIENT
  Sex: Female
  Weight: 68.027 kg

DRUGS (9)
  1. AREDIA [Suspect]
  2. ZOMETA [Suspect]
  3. FOSAMAX [Suspect]
  4. ATENOLOL [Concomitant]
  5. COZAAR [Concomitant]
  6. MAXZIDE [Concomitant]
  7. DECADRON                                /NET/ [Concomitant]
  8. XELODA [Concomitant]
  9. ZESTRIL [Concomitant]

REACTIONS (16)
  - ANXIETY [None]
  - CARDIAC DISORDER [None]
  - CYST [None]
  - DECREASED INTEREST [None]
  - DISEASE RECURRENCE [None]
  - GENERAL PHYSICAL HEALTH DETERIORATION [None]
  - METASTASES TO BONE MARROW [None]
  - METASTASES TO CENTRAL NERVOUS SYSTEM [None]
  - OSTEONECROSIS OF JAW [None]
  - PAIN [None]
  - RETINAL IMPLANT [None]
  - STOMATITIS [None]
  - SWELLING [None]
  - TOOTH EXTRACTION [None]
  - TOOTH FRACTURE [None]
  - VISUAL ACUITY REDUCED [None]
